FAERS Safety Report 4664197-0 (Version None)
Quarter: 2005Q2

REPORT INFORMATION
  Report Type: 
  Country: None (occurrence: None)
  Receive Date: 20050516
  Receipt Date: 20050503
  Transmission Date: 20051028
  Serious: Yes (Hospitalization)
  Sender: FDA-Public Use
  Company Number: 2005070862

PATIENT
  Age: 69 Year
  Sex: Female

DRUGS (7)
  1. LIPITOR [Suspect]
     Indication: HYPERCHOLESTEROLAEMIA
     Dosage: 10 MG, ORAL
     Route: 048
     Dates: start: 20000501
  2. ROSIGLITAZONE MALEATE [Concomitant]
  3. METOPROLOL TARTRATE [Concomitant]
  4. CILAZAPRIL (CILAZAPRIL) [Concomitant]
  5. ASPIRIN [Concomitant]
  6. LEVOTHYROXINE SODIUM [Concomitant]
  7. BROMAZEPAM (BROMAZEPAM) [Concomitant]

REACTIONS (3)
  - ARTERIAL OCCLUSIVE DISEASE [None]
  - BACK PAIN [None]
  - VASCULAR BYPASS GRAFT [None]
